FAERS Safety Report 25472584 (Version 1)
Quarter: 2025Q2

REPORT INFORMATION
  Report Type: Spontaneous
  Country: US (occurrence: US)
  Receive Date: 20250624
  Receipt Date: 20250624
  Transmission Date: 20250717
  Serious: No
  Sender: AMGEN
  Company Number: US-AMGEN-USASP2025118580

PATIENT
  Sex: Female

DRUGS (1)
  1. RIABNI [Suspect]
     Active Substance: RITUXIMAB-ARRX
     Indication: Autoimmune disorder
     Dosage: UNK UNK, Q6MO
     Route: 065
     Dates: start: 202312

REACTIONS (6)
  - Drug ineffective for unapproved indication [Unknown]
  - Off label use [Unknown]
  - Postural orthostatic tachycardia syndrome [Unknown]
  - Fatigue [Unknown]
  - Asthenia [Unknown]
  - Dyspnoea [Unknown]

NARRATIVE: CASE EVENT DATE: 20231201
